FAERS Safety Report 20702211 (Version 1)
Quarter: 2022Q2

REPORT INFORMATION
  Report Type: Report from Study
  Country: MX (occurrence: MX)
  Receive Date: 20220412
  Receipt Date: 20220412
  Transmission Date: 20220720
  Serious: Yes (Other)
  Sender: FDA-Public Use
  Company Number: MX-BRISTOL-MYERS SQUIBB COMPANY-2022-017480

PATIENT
  Age: 52 Year
  Weight: 67 kg

DRUGS (1)
  1. SPRYCEL [Suspect]
     Active Substance: DASATINIB
     Indication: Chronic myeloid leukaemia
     Dosage: DAILY
     Dates: start: 20210903

REACTIONS (3)
  - Pleural disorder [Recovered/Resolved]
  - Hepatotoxicity [Not Recovered/Not Resolved]
  - Therapy change [Recovered/Resolved]

NARRATIVE: CASE EVENT DATE: 20220318
